FAERS Safety Report 5453106-2 (Version None)
Quarter: 2007Q3

REPORT INFORMATION
  Report Type: 
  Country: None (occurrence: None)
  Receive Date: 20070914
  Receipt Date: 20070911
  Transmission Date: 20080115
  Serious: Yes (Death, Hospitalization)
  Sender: FDA-Public Use
  Company Number: KR-PFIZER INC-2007070196

PATIENT
  Sex: Male
  Weight: 90 kg

DRUGS (1)
  1. SU-011,248 [Suspect]
     Indication: RENAL CELL CARCINOMA STAGE UNSPECIFIED
     Route: 048
     Dates: start: 20070430, end: 20070819

REACTIONS (18)
  - ALANINE AMINOTRANSFERASE INCREASED [None]
  - ALVEOLITIS ALLERGIC [None]
  - ASPARTATE AMINOTRANSFERASE INCREASED [None]
  - BLOOD ALKALINE PHOSPHATASE INCREASED [None]
  - BLOOD BILIRUBIN INCREASED [None]
  - BLOOD PH INCREASED [None]
  - DUODENAL ULCER [None]
  - DYSPNOEA [None]
  - GASTRIC ULCER [None]
  - HAEMATEMESIS [None]
  - MALIGNANT NEOPLASM PROGRESSION [None]
  - METASTASES TO LYMPH NODES [None]
  - METASTATIC NEOPLASM [None]
  - OESOPHAGEAL VARICES HAEMORRHAGE [None]
  - PNEUMONITIS [None]
  - PORTAL VEIN THROMBOSIS [None]
  - PULMONARY EMBOLISM [None]
  - ROAD TRAFFIC ACCIDENT [None]
